FAERS Safety Report 6552650-4 (Version None)
Quarter: 2010Q1

REPORT INFORMATION
  Report Type: 
  Country: None (occurrence: None)
  Receive Date: 20100126
  Receipt Date: 20100125
  Transmission Date: 20100710
  Serious: Yes (Death, Hospitalization)
  Sender: FDA-Public Use
  Company Number: A0841270A

PATIENT
  Age: 64 Year
  Sex: Male
  Weight: 72.7 kg

DRUGS (1)
  1. AVANDIA [Suspect]
     Indication: DIABETES MELLITUS
     Route: 048
     Dates: start: 20030913, end: 20070327

REACTIONS (3)
  - CONDITION AGGRAVATED [None]
  - DEATH [None]
  - MYOCARDIAL INFARCTION [None]
